FAERS Safety Report 10685804 (Version 6)
Quarter: 2016Q1

REPORT INFORMATION
  Report Type: Spontaneous
  Country: US (occurrence: US)
  Receive Date: 20141231
  Receipt Date: 20160218
  Transmission Date: 20160525
  Serious: Yes (Hospitalization, Congenital Anomaly, Other)
  Sender: FDA-Public Use
  Company Number: US-APOTEX-2014AP006407

PATIENT
  Age: 1 Month
  Sex: Female
  Weight: 3 kg

DRUGS (2)
  1. PAXIL [Suspect]
     Active Substance: PAROXETINE HYDROCHLORIDE
     Dosage: 20 MG, QD
     Route: 064
     Dates: end: 1996
  2. PAXIL [Suspect]
     Active Substance: PAROXETINE HYDROCHLORIDE
     Indication: DEPRESSION
     Dosage: 10 MG, QD
     Route: 064
     Dates: end: 19990912

REACTIONS (20)
  - Hypoplastic left heart syndrome [Unknown]
  - Aortic valve incompetence [Unknown]
  - Congenital scoliosis [Unknown]
  - Atrial septal defect [Unknown]
  - Sickle cell trait [Unknown]
  - Heart disease congenital [Unknown]
  - Pulmonary oedema [Unknown]
  - Ventricular septal defect [Recovered/Resolved]
  - Pleural effusion [Unknown]
  - Hydranencephaly [Unknown]
  - Asthma [Unknown]
  - Cardiomegaly [Unknown]
  - Foetal exposure during pregnancy [Unknown]
  - Respiratory syncytial virus bronchiolitis [Recovered/Resolved]
  - Patent ductus arteriosus [Recovered/Resolved]
  - Cardiac murmur [Unknown]
  - Bicuspid aortic valve [Unknown]
  - Pneumonia [Unknown]
  - Congenital bladder anomaly [Unknown]
  - Cardiac failure congestive [Unknown]

NARRATIVE: CASE EVENT DATE: 19991110
